FAERS Safety Report 9228885 (Version 2)
Quarter: 2013Q2

REPORT INFORMATION
  Report Type: Spontaneous
  Country: JP (occurrence: JP)
  Receive Date: 20130412
  Receipt Date: 20130430
  Transmission Date: 20140414
  Serious: Yes (Hospitalization)
  Sender: FDA-Public Use
  Company Number: JP-NAPPMUNDI-GBR-2013-0013670

PATIENT
  Age: 80 Year
  Sex: Female

DRUGS (8)
  1. BUPRENORPHINE TRANSDERMAL SYSTEM [Suspect]
     Indication: ANALGESIC THERAPY
     Dosage: 10 MCG, Q1H
     Route: 062
     Dates: start: 20121106, end: 20130304
  2. BUPRENORPHINE TRANSDERMAL SYSTEM [Suspect]
     Dosage: 5 MCG, Q1H
     Route: 062
     Dates: start: 20120904, end: 20121029
  3. BUPRENORPHINE TRANSDERMAL SYSTEM [Suspect]
     Dosage: 10 MCG, Q1H
     Route: 062
     Dates: start: 20120424, end: 20120430
  4. BUPRENORPHINE TRANSDERMAL SYSTEM [Suspect]
     Dosage: 5 MCG, Q1H
     Route: 062
     Dates: start: 20120410, end: 20120423
  5. INDOMETACIN [Concomitant]
     Indication: ANALGESIC THERAPY
     Route: 065
  6. SORELMON [Concomitant]
     Dosage: 3 TABLET, DAILY
     Route: 048
     Dates: start: 2009
  7. PLETAAL [Concomitant]
     Dosage: 3 TABLET, DAILY
     Route: 048
     Dates: start: 2009
  8. ANPLAG [Concomitant]
     Dosage: 3 TABLET, DAILY
     Route: 048
     Dates: start: 2009

REACTIONS (3)
  - Anaemia [Recovered/Resolved]
  - Decreased appetite [Recovered/Resolved]
  - Dehydration [Recovered/Resolved]
